FAERS Safety Report 4488135-9 (Version None)
Quarter: 2004Q4

REPORT INFORMATION
  Report Type: 
  Country: None (occurrence: None)
  Receive Date: 20041022
  Receipt Date: 20041001
  Transmission Date: 20050328
  Serious: Yes (Death)
  Sender: FDA-Public Use
  Company Number: 6010912

PATIENT
  Age: 62 Year
  Sex: Female

DRUGS (7)
  1. DIKLOFENAC NM PHARMA ENTERIC COATED TABLETS ( 50 MG, [Suspect]
     Indication: PAIN
     Dosage: 150 MG ORAL
     Route: 048
     Dates: start: 20020901, end: 20040308
  2. ALVEDON (PARACETAMOL) [Suspect]
     Indication: PAIN
     Dosage: 4 GM ORAL
     Route: 048
     Dates: end: 20040308
  3. SELOKEN ZOC (METOPROLOL SUCCINATE) [Concomitant]
  4. NITROGLYCERIN [Concomitant]
  5. ASPIRIN [Concomitant]
  6. ACETYLCYSTEINE [Concomitant]
  7. FEM-MONO RETARD (ISOSORBIDE MONONITRATE) [Concomitant]

REACTIONS (8)
  - ALCOHOL USE [None]
  - ATRIAL RUPTURE [None]
  - CARDIOVASCULAR DISORDER [None]
  - CORONARY ARTERY INSUFFICIENCY [None]
  - MYOCARDIAL INFARCTION [None]
  - PROCEDURAL COMPLICATION [None]
  - SHOCK [None]
  - VENTRICULAR FAILURE [None]
